FAERS Safety Report 4911060-3 (Version None)
Quarter: 2006Q1

REPORT INFORMATION
  Report Type: 
  Country: None (occurrence: None)
  Receive Date: 20060214
  Receipt Date: 20060210
  Transmission Date: 20060701
  Serious: Yes (Hospitalization)
  Sender: FDA-Public Use
  Company Number: NL-SANOFI-SYNTHELABO-F01200600388

PATIENT
  Sex: Female

DRUGS (6)
  1. OXALIPLATIN [Suspect]
     Indication: COLORECTAL CANCER
     Route: 041
     Dates: start: 20060208, end: 20060208
  2. CAPECITABINE [Suspect]
     Dosage: 1800 MG BID DAYS 1-14 (1250 MG/M2 AFTER CYCLE 6)
     Route: 048
     Dates: start: 20060208
  3. BEVACIZUMAB [Suspect]
     Route: 041
     Dates: start: 20060208, end: 20060208
  4. CETUXIMAB [Suspect]
     Dosage: 400 MG/M2 DAY 1 OF CYCLE 1, THEREAFTER 250 MG/M2 (460 MG) WEEKLY
     Route: 041
     Dates: start: 20060208, end: 20060208
  5. TAVEGIL [Concomitant]
     Indication: PREMEDICATION
     Dosage: 9:00-17:30 UNK
     Route: 065
     Dates: start: 20060208, end: 20060208
  6. DEXAMETHASONE [Concomitant]
     Indication: PREMEDICATION
     Route: 065
     Dates: start: 20060208, end: 20060208

REACTIONS (2)
  - BRONCHOSPASM [None]
  - STRIDOR [None]
